FAERS Safety Report 19275706 (Version 1)
Quarter: 2021Q2

REPORT INFORMATION
  Report Type: Spontaneous
  Country: US (occurrence: US)
  Receive Date: 20210519
  Receipt Date: 20210519
  Transmission Date: 20210717
  Serious: Yes (Other)
  Sender: FDA-Public Use
  Company Number: NVSC2021US105979

PATIENT
  Age: 76 Year
  Sex: Male

DRUGS (2)
  1. CARBOPLATIN. [Suspect]
     Active Substance: CARBOPLATIN
     Dosage: UNK
     Route: 065
     Dates: start: 201504, end: 201504
  2. CARBOPLATIN. [Suspect]
     Active Substance: CARBOPLATIN
     Indication: PROSTATE CANCER METASTATIC
     Dosage: UNK
     Route: 065
     Dates: start: 2009

REACTIONS (2)
  - Prostate cancer metastatic [Unknown]
  - Hypersensitivity [Unknown]
